FAERS Safety Report 21027696 (Version 1)
Quarter: 2022Q2

REPORT INFORMATION
  Report Type: Spontaneous
  Country: US (occurrence: None)
  Receive Date: 20220630
  Receipt Date: 20220630
  Transmission Date: 20220721
  Serious: No
  Sender: FDA-Public Use
  Company Number: None

PATIENT
  Age: 70 Year
  Sex: Female
  Weight: 64.3 kg

DRUGS (2)
  1. CARBOPLATIN [Suspect]
     Active Substance: CARBOPLATIN
     Dates: end: 20220531
  2. ALIMTA [Concomitant]
     Active Substance: PEMETREXED DISODIUM
     Dates: end: 20220531

REACTIONS (1)
  - Normocytic anaemia [None]

NARRATIVE: CASE EVENT DATE: 20220615
